FAERS Safety Report 20213338 (Version 1)
Quarter: 2021Q4

REPORT INFORMATION
  Report Type: Spontaneous
  Country: CN (occurrence: CN)
  Receive Date: 20211221
  Receipt Date: 20211221
  Transmission Date: 20220303
  Serious: Yes (Other)
  Sender: FDA-Public Use
  Company Number: CN-PFIZER INC-202101752293

PATIENT
  Age: 64 Year
  Sex: Female
  Weight: 59.4 kg

DRUGS (2)
  1. SOLU-MEDROL [Suspect]
     Active Substance: METHYLPREDNISOLONE SODIUM SUCCINATE
     Indication: Asthma
     Dosage: 40 MG, 2X/DAY
     Route: 041
     Dates: start: 20210811, end: 20210814
  2. SODIUM CHLORIDE [Concomitant]
     Active Substance: SODIUM CHLORIDE
     Indication: Vehicle solution use
     Dosage: 100 ML, 2X/DAY
     Route: 041
     Dates: start: 20210811, end: 20210814

REACTIONS (1)
  - Tremor [Recovering/Resolving]

NARRATIVE: CASE EVENT DATE: 20210814
